FAERS Safety Report 4327168-X (Version None)
Quarter: 2004Q1

REPORT INFORMATION
  Report Type: 
  Country: None (occurrence: None)
  Receive Date: 20040330
  Receipt Date: 20040326
  Transmission Date: 20041129
  Serious: Yes (Other)
  Sender: FDA-Public Use
  Company Number: DE-GLAXOSMITHKLINE-D0043479A

PATIENT
  Age: 54 Year
  Sex: Male

DRUGS (3)
  1. QUILONUM RETARD [Suspect]
     Indication: BIPOLAR I DISORDER
     Route: 048
     Dates: start: 19680101, end: 20010101
  2. MELLARIL [Concomitant]
     Route: 065
  3. RAMIPRIL [Concomitant]
     Dosage: 5MG PER DAY
     Route: 065

REACTIONS (9)
  - BLOOD CREATININE INCREASED [None]
  - BLOOD POTASSIUM INCREASED [None]
  - GLOMERULONEPHRITIS CHRONIC [None]
  - HYPERPARATHYROIDISM [None]
  - HYPERTENSION [None]
  - NEPHROPATHY [None]
  - NOCTURIA [None]
  - OEDEMA PERIPHERAL [None]
  - RENAL FAILURE [None]
